FAERS Safety Report 6891408-3 (Version None)
Quarter: 2010Q3

REPORT INFORMATION
  Report Type: 
  Country: None (occurrence: None)
  Receive Date: 20100731
  Receipt Date: 20070709
  Transmission Date: 20110219
  Serious: No
  Sender: FDA-Public Use
  Company Number: US-PFIZER INC-2007055371

PATIENT
  Sex: Female
  Weight: 63.6 kg

DRUGS (5)
  1. NORVASC [Suspect]
     Indication: HYPERTENSION
     Route: 048
     Dates: end: 20070510
  2. AMLODIPINE [Suspect]
     Indication: HYPERTENSION
     Route: 048
     Dates: start: 20070527
  3. TOPROL-XL [Concomitant]
  4. ZOCOR [Concomitant]
  5. THYROID TAB [Concomitant]

REACTIONS (8)
  - ABDOMINAL PAIN [None]
  - DYSPEPSIA [None]
  - FATIGUE [None]
  - HEADACHE [None]
  - HERNIA [None]
  - NAUSEA [None]
  - RASH [None]
  - SWELLING [None]
